FAERS Safety Report 9147815 (Version 1)
Quarter: 2013Q1

REPORT INFORMATION
  Report Type: Spontaneous
  Country: US (occurrence: US)
  Receive Date: 20130307
  Receipt Date: 20130307
  Transmission Date: 20140127
  Serious: No
  Sender: FDA-Public Use
  Company Number: US-TEVA-390167USA

PATIENT
  Sex: Male
  Weight: 63.56 kg

DRUGS (4)
  1. AZILECT [Suspect]
     Indication: PARKINSON^S DISEASE
     Dosage: .5 MILLIGRAM DAILY;
     Route: 048
     Dates: start: 2011
  2. AMANTADINE [Suspect]
  3. LEVODOPA [Suspect]
  4. MUCINEX DM [Concomitant]
     Indication: RESPIRATORY TRACT CONGESTION
     Route: 048

REACTIONS (1)
  - Fall [Not Recovered/Not Resolved]
